FAERS Safety Report 13777808 (Version 1)
Quarter: 2017Q3

REPORT INFORMATION
  Report Type: Spontaneous
  Country: FR (occurrence: FR)
  Receive Date: 20170721
  Receipt Date: 20170721
  Transmission Date: 20171127
  Serious: Yes (Other)
  Sender: FDA-Public Use
  Company Number: FR-ELI_LILLY_AND_COMPANY-FR201707006693

PATIENT
  Age: 58 Year
  Sex: Male

DRUGS (1)
  1. ERBITUX [Suspect]
     Active Substance: CETUXIMAB
     Indication: PHARYNGEAL CANCER
     Dosage: 675 MG, UNKNOWN
     Route: 042
     Dates: start: 20120726, end: 20120726

REACTIONS (1)
  - Ocular toxicity [Recovered/Resolved]

NARRATIVE: CASE EVENT DATE: 20120802
